FAERS Safety Report 25043265 (Version 1)
Quarter: 2025Q1

REPORT INFORMATION
  Report Type: Report from Study
  Country: IN (occurrence: IN)
  Receive Date: 20250305
  Receipt Date: 20250305
  Transmission Date: 20250409
  Serious: Yes (Hospitalization, Other)
  Sender: NOVARTIS
  Company Number: IN-002147023-NVSC2021IN115765

PATIENT
  Age: 68 Year
  Sex: Female

DRUGS (11)
  1. TASIGNA [Suspect]
     Active Substance: NILOTINIB
     Indication: Chronic myeloid leukaemia
     Dosage: 200 MG, BID
     Route: 048
     Dates: start: 202104, end: 202106
  2. TASIGNA [Suspect]
     Active Substance: NILOTINIB
     Dosage: 200 MG, QD
     Route: 048
     Dates: start: 20210414
  3. TASIGNA [Suspect]
     Active Substance: NILOTINIB
     Route: 065
     Dates: start: 20220323, end: 20220623
  4. TASIGNA [Suspect]
     Active Substance: NILOTINIB
     Route: 065
     Dates: start: 20220624, end: 20220925
  5. TASIGNA [Suspect]
     Active Substance: NILOTINIB
     Route: 065
     Dates: start: 20220926, end: 20221221
  6. TASIGNA [Suspect]
     Active Substance: NILOTINIB
     Dosage: 200 MG, QD (STOP ON 20 SEP 2023)
     Route: 048
     Dates: start: 20221222, end: 20230312
  7. TASIGNA [Suspect]
     Active Substance: NILOTINIB
     Dosage: 200 MG, QD
     Route: 065
     Dates: start: 20230313
  8. TASIGNA [Suspect]
     Active Substance: NILOTINIB
     Dosage: 200 MG, QD
     Route: 065
     Dates: start: 20230609
  9. TASIGNA [Suspect]
     Active Substance: NILOTINIB
     Dosage: 200 MG, QD
     Route: 048
     Dates: start: 20230921
  10. TASIGNA [Suspect]
     Active Substance: NILOTINIB
     Dosage: 200 MG, QD
     Route: 048
     Dates: start: 20240111
  11. TASIGNA [Suspect]
     Active Substance: NILOTINIB
     Dosage: 200 MG, QD
     Route: 048
     Dates: start: 20240429

REACTIONS (7)
  - Malaise [Unknown]
  - White blood cell count increased [Unknown]
  - Drug intolerance [Not Recovered/Not Resolved]
  - Haemoglobin decreased [Not Recovered/Not Resolved]
  - Platelet count decreased [Not Recovered/Not Resolved]
  - Hypertension [Not Recovered/Not Resolved]
  - Off label use [Unknown]

NARRATIVE: CASE EVENT DATE: 20210401
